FAERS Safety Report 4797439-1 (Version None)
Quarter: 2005Q4

REPORT INFORMATION
  Report Type: 
  Country: None (occurrence: None)
  Receive Date: 20051013
  Receipt Date: 20050923
  Transmission Date: 20060501
  Serious: Yes (Hospitalization, Other)
  Sender: FDA-Public Use
  Company Number: US-AMGEN-US151766

PATIENT
  Age: 68 Year
  Sex: Female

DRUGS (1)
  1. ENBREL [Suspect]
     Indication: RHEUMATOID ARTHRITIS
     Route: 058
     Dates: start: 19990601, end: 20050601

REACTIONS (6)
  - CEREBRAL DISORDER [None]
  - ENDOCARDITIS [None]
  - INFECTION [None]
  - RASH [None]
  - SURGERY [None]
  - TERMINAL STATE [None]
